FAERS Safety Report 4803554-6 (Version None)
Quarter: 2005Q4

REPORT INFORMATION
  Report Type: 
  Country: None (occurrence: None)
  Receive Date: 20051019
  Receipt Date: 20051017
  Transmission Date: 20060501
  Serious: Yes (Death)
  Sender: FDA-Public Use
  Company Number: ES-BRISTOL-MYERS SQUIBB COMPANY-13147970

PATIENT
  Age: 67 Year
  Sex: Male

DRUGS (6)
  1. PACLITAXEL [Suspect]
     Indication: NON-SMALL CELL LUNG CANCER
     Route: 042
     Dates: start: 20041014, end: 20041014
  2. OMEPRAZOLE [Concomitant]
  3. IBUPROFEN [Concomitant]
  4. CODEISAN [Concomitant]
  5. VENTOLIN [Concomitant]
  6. DAONIL [Concomitant]

REACTIONS (1)
  - DEATH [None]
